FAERS Safety Report 19913438 (Version 13)
Quarter: 2022Q4

REPORT INFORMATION
  Report Type: Report from Study
  Country: IT (occurrence: None)
  Receive Date: 20211004
  Receipt Date: 20221013
  Transmission Date: 20230113
  Serious: Yes (Hospitalization)
  Sender: FDA-Public Use
  Company Number: IT-ROCHE-2925195

PATIENT
  Age: 57 Year
  Sex: Male
  Weight: 80 kg

DRUGS (19)
  1. ATEZOLIZUMAB [Suspect]
     Active Substance: ATEZOLIZUMAB
     Indication: Hepatocellular carcinoma
     Dosage: ON 06/JUL/2021, HE RECEIVED MOST RECENT DOSE OF ATEZOLZIUMAB (1200 MG) PRIOR TO ONSET OF SERIOUS ADV
     Route: 041
     Dates: start: 20200804
  2. BEVACIZUMAB [Suspect]
     Active Substance: BEVACIZUMAB
     Indication: Hepatocellular carcinoma
     Dosage: ON 06/JUL/2021, HE RECEIVED MOST RECENT DOSE OF BEVACIZUMAB (1200 MG) PRIOR TO ONSET OF SERIOUS ADVE
     Route: 042
     Dates: start: 20200804
  3. INDERAL [Concomitant]
     Active Substance: PROPRANOLOL HYDROCHLORIDE
     Indication: Gastritis
     Dates: start: 201908
  4. PANTOPRAZOLE [Concomitant]
     Active Substance: PANTOPRAZOLE
     Indication: Gastritis
     Dates: start: 2019
  5. CHOLECALCIFEROL [Concomitant]
     Active Substance: CHOLECALCIFEROL
     Indication: Hepatic cirrhosis
  6. FOLIC ACID [Concomitant]
     Active Substance: FOLIC ACID
     Indication: Hepatic cirrhosis
  7. LINAGLIPTIN [Concomitant]
     Active Substance: LINAGLIPTIN
     Indication: Diabetes mellitus
     Dates: start: 20200911
  8. METFORMIN [Concomitant]
     Active Substance: METFORMIN HYDROCHLORIDE
     Indication: Diabetes mellitus
     Dates: start: 20201006
  9. METFORMIN [Concomitant]
     Active Substance: METFORMIN HYDROCHLORIDE
     Dosage: 500
     Dates: start: 20200911
  10. LINAGLIPTIN [Concomitant]
     Active Substance: LINAGLIPTIN
     Route: 048
     Dates: start: 20210917
  11. FOLINA [Concomitant]
     Route: 048
     Dates: start: 20210917
  12. CHOLECALCIFEROL [Concomitant]
     Active Substance: CHOLECALCIFEROL
     Dates: start: 20210917
  13. OMEPRAZOLE [Concomitant]
     Active Substance: OMEPRAZOLE
     Route: 048
     Dates: start: 20211008
  14. LACTULOSE [Concomitant]
     Active Substance: LACTULOSE
     Indication: Pancreatitis
     Dosage: 2 TBSP
     Dates: start: 20211008
  15. CANRENOATE POTASSIUM [Concomitant]
     Active Substance: CANRENOATE POTASSIUM
     Indication: Diabetes mellitus
     Dates: start: 20200911
  16. CANRENOATE POTASSIUM [Concomitant]
     Active Substance: CANRENOATE POTASSIUM
     Dates: start: 202105
  17. ALBUMIN HUMAN [Concomitant]
     Active Substance: ALBUMIN HUMAN
     Indication: Anal haemorrhage
     Dates: start: 20210913, end: 20210917
  18. MIDAZOLAM [Concomitant]
     Active Substance: MIDAZOLAM
     Indication: Prophylaxis
     Dates: start: 20210914, end: 20210914
  19. XYLOCAINA (ITALY) [Concomitant]
     Indication: Prophylaxis
     Dates: start: 20210914, end: 20210914

REACTIONS (1)
  - Pancreatitis acute [Recovered/Resolved]

NARRATIVE: CASE EVENT DATE: 20210923
